FAERS Safety Report 14337208 (Version 1)
Quarter: 2017Q4

REPORT INFORMATION
  Report Type: Spontaneous
  Country: BR (occurrence: BR)
  Receive Date: 20171229
  Receipt Date: 20171229
  Transmission Date: 20180321
  Serious: Yes (Other)
  Sender: FDA-Public Use
  Company Number: BR-ROCHE-2046374

PATIENT
  Sex: Female

DRUGS (5)
  1. RIVOTRIL [Suspect]
     Active Substance: CLONAZEPAM
     Indication: BIPOLAR DISORDER
     Route: 065
     Dates: start: 20171220
  2. RIVOTRIL [Suspect]
     Active Substance: CLONAZEPAM
     Dosage: IN THE MORNING, IN THE AFTERNOON AND AT NIGHT,
     Route: 065
  3. VENLAFAXINE [Concomitant]
     Active Substance: VENLAFAXINE HYDROCHLORIDE
     Indication: BIPOLAR DISORDER
  4. CARBOLITIUM [Suspect]
     Active Substance: LITHIUM CARBONATE
     Indication: PRODUCT USED FOR UNKNOWN INDICATION
     Route: 065
  5. DEPAKOTE [Concomitant]
     Active Substance: DIVALPROEX SODIUM
     Indication: BIPOLAR DISORDER

REACTIONS (11)
  - Bipolar disorder [Unknown]
  - Inappropriate schedule of drug administration [Unknown]
  - Sluggishness [Unknown]
  - Poisoning [Unknown]
  - Fatigue [Unknown]
  - Nausea [Unknown]
  - Asthenia [Unknown]
  - Nervousness [Unknown]
  - Dizziness [Unknown]
  - Somnolence [Unknown]
  - Dry mouth [Unknown]
